FAERS Safety Report 14425739 (Version 1)
Quarter: 2018Q1

REPORT INFORMATION
  Report Type: Spontaneous
  Country: US (occurrence: US)
  Receive Date: 20180122
  Receipt Date: 20180122
  Transmission Date: 20180509
  Serious: Yes (Death)
  Sender: FDA-Public Use
  Company Number: None

PATIENT
  Age: 61 Year
  Sex: Female

DRUGS (7)
  1. CISPLATIN. [Concomitant]
     Active Substance: CISPLATIN
  2. PACLITAXEL. [Concomitant]
     Active Substance: PACLITAXEL
  3. DIPHENHYDRAMINE. [Concomitant]
     Active Substance: DIPHENHYDRAMINE
  4. DEXAMETH [Concomitant]
     Active Substance: DEXAMETHASONE
  5. OXYCOD/APA [Concomitant]
  6. RANITIDINE. [Suspect]
     Active Substance: RANITIDINE
     Indication: CERVIX CARCINOMA
     Dosage: OTHER FREQUENCY:EVERY 21 DAYS;?
     Route: 042
  7. GRANISERTON [Suspect]
     Active Substance: GRANISETRON
     Indication: CERVIX CARCINOMA
     Dosage: OTHER FREQUENCY:EVERY 21 DAYS;?
     Route: 042

REACTIONS (1)
  - Death [None]

NARRATIVE: CASE EVENT DATE: 20180120
